FAERS Safety Report 7699043-4 (Version None)
Quarter: 2011Q3

REPORT INFORMATION
  Report Type: 
  Country: None (occurrence: None)
  Receive Date: 20110819
  Receipt Date: 20110805
  Transmission Date: 20111222
  Serious: Yes (Other)
  Sender: FDA-Public Use
  Company Number: PHEH2011US00768

PATIENT
  Sex: Male

DRUGS (12)
  1. FISH OIL [Concomitant]
  2. RECLAST [Suspect]
     Dosage: UNK UKN, UNK
     Route: 042
  3. ASPIRIN [Concomitant]
  4. LEVOXYL [Concomitant]
  5. LOVASTATIN [Concomitant]
  6. EFFEXOR [Concomitant]
  7. ARICEPT [Concomitant]
  8. HYDROCORT [Concomitant]
  9. METFORMIN HYDROCHLORIDE [Concomitant]
  10. VITAMIN D [Concomitant]
  11. CHROMIUM CHLORIDE [Concomitant]
  12. CALCIUM CARBONATE [Concomitant]

REACTIONS (6)
  - GAIT DISTURBANCE [None]
  - LETHARGY [None]
  - FEELING ABNORMAL [None]
  - PNEUMONIA [None]
  - SPEECH DISORDER [None]
  - UNRESPONSIVE TO STIMULI [None]
